FAERS Safety Report 13166104 (Version 2)
Quarter: 2017Q1

REPORT INFORMATION
  Report Type: Spontaneous
  Country: GT (occurrence: GT)
  Receive Date: 20170131
  Receipt Date: 20170206
  Transmission Date: 20170428
  Serious: Yes (Disabling)
  Sender: FDA-Public Use
  Company Number: GT-UCBSA-2017003615

PATIENT
  Age: 12 Year
  Sex: Male

DRUGS (2)
  1. KEPPRA [Suspect]
     Active Substance: LEVETIRACETAM
     Indication: SEIZURE
     Dosage: 500 MG, 3X/DAY (TID)
     Route: 048
  2. VALPROIC ACID. [Suspect]
     Active Substance: VALPROIC ACID
     Indication: SEIZURE
     Dosage: UNK, 3X/DAY (TID)
     Route: 048

REACTIONS (5)
  - Urinary incontinence [Not Recovered/Not Resolved]
  - Prescribed overdose [Unknown]
  - Somnolence [Not Recovered/Not Resolved]
  - Off label use [Unknown]
  - Anal incontinence [Not Recovered/Not Resolved]
